FAERS Safety Report 15968130 (Version 1)
Quarter: 2019Q1

REPORT INFORMATION
  Report Type: Report from Study
  Country: GB (occurrence: GB)
  Receive Date: 20190215
  Receipt Date: 20190215
  Transmission Date: 20190418
  Serious: Yes (Other)
  Sender: FDA-Public Use
  Company Number: GB-JNJFOC-20190210000

PATIENT

DRUGS (1)
  1. INFLIXIMAB, RECOMBINANT [Suspect]
     Active Substance: INFLIXIMAB
     Indication: CROHN^S DISEASE
     Route: 042

REACTIONS (8)
  - Musculoskeletal stiffness [Unknown]
  - Sacroiliitis [Unknown]
  - Alopecia [Unknown]
  - Synovitis [Unknown]
  - Lupus-like syndrome [Unknown]
  - Arthralgia [Unknown]
  - Enthesopathy [Unknown]
  - Rash [Unknown]
